FAERS Safety Report 11499518 (Version 1)
Quarter: 2015Q3

REPORT INFORMATION
  Report Type: Spontaneous
  Country: US (occurrence: US)
  Receive Date: 20150914
  Receipt Date: 20150914
  Transmission Date: 20151125
  Serious: No
  Sender: FDA-Public Use
  Company Number: US-B.I. PHARMACEUTICALS,INC./RIDGEFIELD-2015-BI-48073BP

PATIENT
  Sex: Female

DRUGS (1)
  1. TRADJENTA [Suspect]
     Active Substance: LINAGLIPTIN
     Indication: PRODUCT USED FOR UNKNOWN INDICATION
     Route: 065

REACTIONS (7)
  - Scratch [Unknown]
  - Muscular weakness [Unknown]
  - Headache [Unknown]
  - Somnolence [Unknown]
  - Hypertension [Unknown]
  - Renal impairment [Unknown]
  - Rash [Unknown]

NARRATIVE: CASE EVENT DATE: 20150604
